FAERS Safety Report 11769772 (Version 3)
Quarter: 2015Q4

REPORT INFORMATION
  Report Type: Spontaneous
  Country: IT (occurrence: IT)
  Receive Date: 20151123
  Receipt Date: 20151211
  Transmission Date: 20160304
  Serious: Yes (Hospitalization)
  Sender: FDA-Public Use
  Company Number: IT-SA-2015SA183274

PATIENT
  Age: 92 Year
  Sex: Male

DRUGS (2)
  1. TAREG [Concomitant]
     Active Substance: VALSARTAN
     Route: 048
  2. LASIX [Suspect]
     Active Substance: FUROSEMIDE
     Dosage: DOSE:1 UNIT(S)
     Route: 048
     Dates: start: 20150925, end: 20150925

REACTIONS (2)
  - Medication error [Unknown]
  - Presyncope [Unknown]

NARRATIVE: CASE EVENT DATE: 20150925
